FAERS Safety Report 4887275-X (Version None)
Quarter: 2005Q4

REPORT INFORMATION
  Report Type: 
  Country: None (occurrence: None)
  Receive Date: 20051221
  Receipt Date: 20050919
  Transmission Date: 20060501
  Serious: No
  Sender: FDA-Public Use
  Company Number: US-YAMANOUCHI-YPA20050487

PATIENT
  Age: 83 Year
  Sex: Male

DRUGS (4)
  1. VESICARE [Suspect]
     Indication: HYPERTONIC BLADDER
     Dosage: 5 MG QD PO
     Route: 048
     Dates: start: 20050912
  2. SOTALOL HCL [Concomitant]
  3. ACIPHEX [Concomitant]
  4. PLAVIX [Concomitant]

REACTIONS (3)
  - CONTUSION [None]
  - PENILE DISCHARGE [None]
  - PYREXIA [None]
